FAERS Safety Report 7369884-1 (Version None)
Quarter: 2011Q1

REPORT INFORMATION
  Report Type: 
  Country: None (occurrence: None)
  Receive Date: 20110323
  Receipt Date: 20110315
  Transmission Date: 20110831
  Serious: Yes (Other)
  Sender: FDA-Public Use
  Company Number: US-JNJFOC-20110308239

PATIENT
  Age: 74 Year
  Sex: Female

DRUGS (2)
  1. NICORETTE [Suspect]
     Indication: EX-TOBACCO USER
     Route: 048
  2. NICORETTE WHITE ICE [Suspect]
     Indication: EX-TOBACCO USER
     Route: 048

REACTIONS (4)
  - ASTHENIA [None]
  - MALAISE [None]
  - INTENTIONAL DRUG MISUSE [None]
  - NICOTINE DEPENDENCE [None]
